FAERS Safety Report 13450298 (Version 1)
Quarter: 2017Q2

REPORT INFORMATION
  Report Type: Spontaneous
  Country: US (occurrence: US)
  Receive Date: 20170417
  Receipt Date: 20170417
  Transmission Date: 20170830
  Serious: No
  Sender: FDA-Public Use
  Company Number: US-BAXTER-2017BAX016174

PATIENT
  Sex: Female

DRUGS (1)
  1. FLUCONAZOLE INJECTION, USP [Suspect]
     Active Substance: FLUCONAZOLE
     Indication: COCCIDIOIDOMYCOSIS
     Route: 065

REACTIONS (4)
  - Swelling face [Unknown]
  - Drug intolerance [Unknown]
  - Dry throat [Unknown]
  - Lip swelling [Unknown]
